FAERS Safety Report 14123579 (Version 1)
Quarter: 2017Q4

REPORT INFORMATION
  Report Type: Spontaneous
  Country: FR (occurrence: FR)
  Receive Date: 20171025
  Receipt Date: 20171025
  Transmission Date: 20180321
  Serious: Yes (Other)
  Sender: FDA-Public Use
  Company Number: FR-MERCK KGAA-2031401

PATIENT
  Sex: Female

DRUGS (3)
  1. NOVOTHYROX [Suspect]
     Active Substance: LEVOTHYROXINE SODIUM
     Indication: PRODUCT USED FOR UNKNOWN INDICATION
     Dates: start: 2017
  2. LERCAN [Concomitant]
     Active Substance: LERCANIDIPINE
  3. TEMERIT [Concomitant]
     Active Substance: NEBIVOLOL

REACTIONS (9)
  - Fatigue [None]
  - Asthenia [None]
  - Malaise [None]
  - Blood thyroid stimulating hormone increased [None]
  - Extrasystoles [None]
  - Arthralgia [None]
  - Myocardial infarction [None]
  - Gait disturbance [None]
  - Tachycardia [None]

NARRATIVE: CASE EVENT DATE: 201708
